FAERS Safety Report 13870774 (Version 1)
Quarter: 2017Q3

REPORT INFORMATION
  Report Type: Spontaneous
  Country: US (occurrence: US)
  Receive Date: 20170816
  Receipt Date: 20170816
  Transmission Date: 20171127
  Serious: No
  Sender: FDA-Public Use
  Company Number: US-BAXTER-2017BAX029643

PATIENT
  Sex: Female

DRUGS (12)
  1. NEXIUM 24HR CLEARMINIS [Suspect]
     Active Substance: ESOMEPRAZOLE MAGNESIUM
     Indication: DYSPEPSIA
     Dosage: 42 COUNT BOX, 14 CAPSULES PER BOTTLE. BY MOUTH
     Route: 048
  2. ROSUVASTATIN. [Concomitant]
     Active Substance: ROSUVASTATIN
     Indication: BLOOD CHOLESTEROL ABNORMAL
     Dosage: TAKING FOR YEARS.
     Route: 065
  3. NEXIUM 24HR [Concomitant]
     Active Substance: ESOMEPRAZOLE MAGNESIUM
     Indication: DYSPEPSIA
     Dosage: EVERY EVENING BEFORE GOES TO BED. USING OVER THE COUNTER SINCE IT CAME OUT MAYBE OR A YEAR OR SO
     Route: 065
  4. CYCLOPHOSPHAMIDE FOR INJECTION, USP [Suspect]
     Active Substance: CYCLOPHOSPHAMIDE
     Indication: BREAST CANCER
     Route: 065
  5. ALPRAZOLAM. [Concomitant]
     Active Substance: ALPRAZOLAM
     Indication: ANXIETY
     Dosage: STARTED WITHIN PAST YEAR OR TWO.
     Route: 065
  6. TAXOTERE [Suspect]
     Active Substance: DOCETAXEL
     Indication: BREAST CANCER
     Route: 065
  7. FUROSEMIDE. [Concomitant]
     Active Substance: FUROSEMIDE
     Indication: OEDEMA
     Dosage: ONE TABLET AS NEEDED. ONLY TAKES IF SHE HAS A WEIGHT GAIN OF MORE THAN FIVE POUNDS WITHIN A WEEK OR
     Route: 065
     Dates: start: 2016
  8. NEULASTA [Suspect]
     Active Substance: PEGFILGRASTIM
     Indication: PRODUCT USED FOR UNKNOWN INDICATION
     Route: 065
  9. DILTIAZEM. [Concomitant]
     Active Substance: DILTIAZEM
     Indication: ATRIAL FIBRILLATION
     Dosage: STARTED 3 OR 4 YEARS AGO.
     Route: 065
  10. SYNTHROID [Concomitant]
     Active Substance: LEVOTHYROXINE SODIUM
     Indication: HYPOTHYROIDISM
     Dosage: BEEN ON FOR MAYBE 20 TO 25 YEARS
     Route: 065
  11. WARFARIN [Concomitant]
     Active Substance: WARFARIN
     Dosage: TWO DAYS A WEEK. STARTED USING WITHIN THE PAST 5 YEARS.
     Route: 065
  12. WARFARIN [Concomitant]
     Active Substance: WARFARIN
     Indication: ATRIAL FIBRILLATION
     Dosage: FIVE DAYS A WEEK. STARTED USING WITHIN THE PAST 5 YEARS.
     Route: 065

REACTIONS (5)
  - Nausea [Unknown]
  - Dehydration [Unknown]
  - Anaemia [Unknown]
  - Vomiting [Unknown]
  - Dyspepsia [Not Recovered/Not Resolved]

NARRATIVE: CASE EVENT DATE: 2017
